FAERS Safety Report 16634226 (Version 2)
Quarter: 2019Q4

REPORT INFORMATION
  Report Type: Spontaneous
  Country: AR (occurrence: AR)
  Receive Date: 20190726
  Receipt Date: 20191127
  Transmission Date: 20200122
  Serious: Yes (Other)
  Sender: FDA-Public Use
  Company Number: AR-AMGEN-ARGSP2019119643

PATIENT
  Age: 49 Year
  Sex: Female

DRUGS (1)
  1. ENBREL [Suspect]
     Active Substance: ETANERCEPT
     Indication: RHEUMATOID ARTHRITIS
     Dosage: 50 MILLIGRAM, QWK
     Route: 065
     Dates: start: 20171025

REACTIONS (2)
  - Amnesia [Recovering/Resolving]
  - Cerebrovascular accident [Unknown]

NARRATIVE: CASE EVENT DATE: 201905
